FAERS Safety Report 8361980 (Version 4)
Quarter: 2013Q4

REPORT INFORMATION
  Report Type: Spontaneous
  Country: JP (occurrence: JP)
  Receive Date: 20120130
  Receipt Date: 20131106
  Transmission Date: 20140711
  Serious: Yes (Other)
  Sender: FDA-Public Use
  Company Number: JP-ROCHE-1033384

PATIENT
  Age: 84 Year
  Sex: Male

DRUGS (2)
  1. RANIBIZUMAB [Suspect]
     Indication: POLYPOIDAL CHOROIDAL VASCULOPATHY
     Route: 050
     Dates: start: 20110510
  2. RANIBIZUMAB [Suspect]
     Dosage: REGIMEN 2
     Route: 031
     Dates: start: 20110607, end: 20110607

REACTIONS (3)
  - Vitreous opacities [Unknown]
  - Vitreous detachment [Unknown]
  - Retinal haemorrhage [Unknown]
